FAERS Safety Report 4823722-7 (Version None)
Quarter: 2005Q4

REPORT INFORMATION
  Report Type: 
  Country: None (occurrence: None)
  Receive Date: 20051109
  Receipt Date: 20051107
  Transmission Date: 20060501
  Serious: Yes (Other)
  Sender: FDA-Public Use
  Company Number: 200514044EU

PATIENT
  Age: 46 Year
  Sex: Male

DRUGS (1)
  1. NICORETTE [Suspect]
     Dosage: 2MG EIGHT TIMES PER DAY
     Route: 048
     Dates: start: 20040701

REACTIONS (4)
  - DRUG DEPENDENCE [None]
  - DRUG INEFFECTIVE [None]
  - MEDICATION ERROR [None]
  - OVERDOSE [None]
